FAERS Safety Report 6247977-X (Version None)
Quarter: 2009Q2

REPORT INFORMATION
  Report Type: 
  Country: None (occurrence: None)
  Receive Date: 20090626
  Receipt Date: 20090622
  Transmission Date: 20091009
  Serious: Yes (Death, Hospitalization)
  Sender: FDA-Public Use
  Company Number: FR-ABBOTT-09P-056-0581896-00

PATIENT
  Sex: Female

DRUGS (5)
  1. ERYTHROCINE [Suspect]
     Indication: LUNG DISORDER
     Route: 042
     Dates: start: 20090315, end: 20090319
  2. PRIMPERAN [Suspect]
     Indication: HYDROCEPHALUS
     Route: 042
     Dates: start: 20090312, end: 20090319
  3. FORTUM [Suspect]
     Indication: MENINGITIS
     Route: 042
     Dates: start: 20090314, end: 20090318
  4. HEPARINE CALCIUM PANPHARMA [Suspect]
     Indication: PHLEBITIS
     Route: 058
     Dates: start: 20090314, end: 20090318
  5. NEXIUM [Suspect]
     Indication: PROPHYLAXIS
     Route: 042
     Dates: start: 20090312, end: 20090321

REACTIONS (1)
  - THROMBOCYTOPENIA [None]
